FAERS Safety Report 6770048-0 (Version None)
Quarter: 2010Q2

REPORT INFORMATION
  Report Type: 
  Country: None (occurrence: None)
  Receive Date: 20100615
  Receipt Date: 20100602
  Transmission Date: 20101027
  Serious: Yes (Hospitalization)
  Sender: FDA-Public Use
  Company Number: JP-PFIZER INC-2010064549

PATIENT
  Sex: Male
  Weight: 16.55 kg

DRUGS (1)
  1. GENOTROPIN [Suspect]
     Indication: SMALL FOR DATES BABY
     Dosage: 0.6 MG, 1X/DAY
     Route: 058
     Dates: start: 20081202, end: 20100506

REACTIONS (1)
  - MALIGNANT MELANOMA [None]
